FAERS Safety Report 4503352-7 (Version None)
Quarter: 2004Q4

REPORT INFORMATION
  Report Type: 
  Country: None (occurrence: None)
  Receive Date: 20041112
  Receipt Date: 20041101
  Transmission Date: 20050328
  Serious: Yes (Life-Threatening, Disabling)
  Sender: FDA-Public Use
  Company Number: 2004214085JP

PATIENT
  Age: 17 Year
  Sex: Male

DRUGS (9)
  1. LUVOX [Suspect]
     Indication: DEPRESSION
     Dosage: 1250 MG DAILY, ORAL
     Route: 048
     Dates: start: 20040506, end: 20040506
  2. DEPAS (ETIZOLAM) [Suspect]
     Indication: SUICIDE ATTEMPT
     Dosage: 23.5 MG, ORAL
     Route: 048
     Dates: start: 20040506, end: 20040506
  3. DORAL [Suspect]
     Indication: SUICIDE ATTEMPT
     Dosage: 120 MG, ORAL
     Route: 048
     Dates: start: 20040506, end: 20040506
  4. MILNACIPRAN (MILNACIPRAN) [Suspect]
     Indication: SUICIDE ATTEMPT
     Dosage: 625MG DAILY, ORAL
     Route: 048
     Dates: start: 20040506, end: 20040506
  5. AMOX (AMOXAPINE) [Suspect]
     Indication: SUICIDE ATTEMPT
     Dosage: 1875 MG DAILY, ORAL
     Route: 048
     Dates: start: 20040506, end: 20040506
  6. HALCION [Suspect]
     Indication: SUICIDE ATTEMPT
     Dosage: 0.5 MG DAILY, ORAL
     Route: 048
     Dates: start: 20040506, end: 20040506
  7. ZOLPIDEM TARTRATE [Suspect]
     Indication: SUICIDE ATTEMPT
     Dosage: 80 MG DAILY, ORAL
     Route: 048
     Dates: start: 20040506, end: 20040506
  8. BROTIZOLAM (BROTHIZOLAM) [Suspect]
     Indication: SUICIDE ATTEMPT
     Dosage: 1 MG DAILY
     Dates: start: 20040506, end: 20040506
  9. NITRAZEPAM [Suspect]
     Indication: SUICIDE ATTEMPT
     Dosage: 30 MG DAILY, ORAL
     Route: 048
     Dates: start: 20040506, end: 20040506

REACTIONS (10)
  - CONVULSION [None]
  - DEPRESSED LEVEL OF CONSCIOUSNESS [None]
  - HAEMODIALYSIS [None]
  - HYPERHIDROSIS [None]
  - MULTIPLE DRUG OVERDOSE [None]
  - MYOCLONUS [None]
  - PYREXIA [None]
  - SOMNOLENCE [None]
  - SUICIDE ATTEMPT [None]
  - TREMOR [None]
